FAERS Safety Report 4312086-3 (Version None)
Quarter: 2004Q1

REPORT INFORMATION
  Report Type: 
  Country: None (occurrence: None)
  Receive Date: 20040303
  Receipt Date: 20040220
  Transmission Date: 20041129
  Serious: No
  Sender: FDA-Public Use
  Company Number: 03P-056-0232565-00

PATIENT
  Age: 75 Year
  Sex: Female
  Weight: 59 kg

DRUGS (10)
  1. BIAXIN [Suspect]
     Indication: INFLUENZA
     Dosage: 250 MG, 2 IN  1 D, PER ORAL
     Route: 048
     Dates: start: 20020413
  2. FENSPIRIDE [Concomitant]
  3. PREDNISOLONE [Concomitant]
  4. GINKGO TREE LEAVES EXTRACT [Concomitant]
  5. TRIMETAZIDINE [Concomitant]
  6. FENOFIBRATE [Concomitant]
  7. URAPIDIL [Concomitant]
  8. ASPIRIN [Concomitant]
  9. ETHANOLAMINE ACETYLLEUCINATE [Concomitant]
  10. TRIMEBUTINE [Concomitant]

REACTIONS (25)
  - ABDOMINAL HERNIA [None]
  - ABDOMINAL PAIN UPPER [None]
  - ACTIVITIES OF DAILY LIVING IMPAIRED [None]
  - ANAEMIA [None]
  - ANOREXIA [None]
  - ASTHENIA [None]
  - BALANCE DISORDER [None]
  - BLOOD PRESSURE SYSTOLIC DECREASED [None]
  - BRONCHIECTASIS [None]
  - CONTUSION [None]
  - DRUG INEFFECTIVE [None]
  - DRUG INTOLERANCE [None]
  - DYSGEUSIA [None]
  - DYSPEPSIA [None]
  - FALL [None]
  - FATIGUE [None]
  - GASTROINTESTINAL DISORDER [None]
  - GASTROOESOPHAGEAL REFLUX DISEASE [None]
  - MALAISE [None]
  - NAUSEA [None]
  - RENAL FAILURE ACUTE [None]
  - RESPIRATORY FAILURE [None]
  - VERTIGO [None]
  - VOMITING [None]
  - WEIGHT DECREASED [None]
